FAERS Safety Report 7469744-1 (Version None)
Quarter: 2011Q2

REPORT INFORMATION
  Report Type: 
  Country: None (occurrence: None)
  Receive Date: 20110510
  Receipt Date: 20110504
  Transmission Date: 20111010
  Serious: Yes (Other)
  Sender: FDA-Public Use
  Company Number: US-SANOFI-AVENTIS-2011SA024993

PATIENT
  Age: 72 Year
  Sex: Male
  Weight: 83 kg

DRUGS (8)
  1. SIMVASTATIN [Concomitant]
  2. FENOFIBRATE [Concomitant]
     Dates: start: 20071101
  3. VITAMIN D [Concomitant]
     Dates: start: 20071101
  4. LANTUS [Suspect]
     Indication: TYPE 2 DIABETES MELLITUS
     Dosage: DOSE:45 UNIT(S)
     Route: 058
     Dates: start: 20081101
  5. INSULIN [Suspect]
     Indication: TYPE 2 DIABETES MELLITUS
     Dates: start: 20081101
  6. ORAL ANTIDIABETICS [Concomitant]
     Dates: start: 20101001
  7. ASPIRIN [Concomitant]
     Dates: start: 20071101
  8. METOPROLOL SUCCINATE [Concomitant]
     Dates: start: 20071101

REACTIONS (3)
  - ABDOMINAL PAIN UPPER [None]
  - PANCREATIC PSEUDOCYST [None]
  - PANCREAS INFECTION [None]
